FAERS Safety Report 9467967 (Version 2)
Quarter: 2013Q3

REPORT INFORMATION
  Report Type: Report from Study
  Country: JP (occurrence: JP)
  Receive Date: 20130821
  Receipt Date: 20130821
  Transmission Date: 20140515
  Serious: Yes (Hospitalization)
  Sender: FDA-Public Use
  Company Number: JP-VERTEX PHARMACEUTICALS INC-AE-2012-010566

PATIENT
  Age: 68 Year
  Sex: Female

DRUGS (10)
  1. VX-950 (TELAPREVIR) [Suspect]
     Indication: CHRONIC HEPATITIS C
     Dosage: 2250 MG, QD
     Route: 048
     Dates: start: 20120604, end: 20120608
  2. REBETOL [Suspect]
     Indication: CHRONIC HEPATITIS C
     Dosage: 600 MG, QD
     Route: 048
     Dates: start: 20120604, end: 20120608
  3. PEGINTRON [Suspect]
     Indication: CHRONIC HEPATITIS C
     Dosage: 80 ?G, QW
     Route: 058
     Dates: start: 20120604, end: 20120604
  4. BLOPRESS [Concomitant]
     Dosage: 8 MG, QD
     Route: 048
     Dates: start: 20120604, end: 20120622
  5. RIKKUNSHITO [Concomitant]
     Dosage: 7.5 G, QD
     Route: 048
     Dates: start: 20120604, end: 20120622
  6. DEPAS [Concomitant]
     Dosage: 3 MG, QD
     Route: 048
     Dates: end: 20120622
  7. TALION [Concomitant]
     Dosage: 20 MG, QD
     Route: 048
     Dates: start: 20120604, end: 20120622
  8. URSO [Concomitant]
     Dosage: 600 MG, QD
     Route: 048
     Dates: start: 20120609, end: 20120622
  9. ADALAT L [Concomitant]
     Dosage: 20 MG, QD
     Route: 048
     Dates: end: 20120604
  10. RENIVACE [Concomitant]
     Dosage: 10 MG, QD
     Route: 048
     Dates: end: 20120604

REACTIONS (2)
  - Renal impairment [Not Recovered/Not Resolved]
  - Hyperuricaemia [Recovered/Resolved]
